FAERS Safety Report 8214558-8 (Version None)
Quarter: 2012Q1

REPORT INFORMATION
  Report Type: 
  Country: None (occurrence: None)
  Receive Date: 20120316
  Receipt Date: 20120305
  Transmission Date: 20120608
  Serious: Yes (Death, Hospitalization)
  Sender: FDA-Public Use
  Company Number: ES-RANBAXY-2012RR-52734

PATIENT
  Age: 73 Year
  Sex: Female

DRUGS (6)
  1. AMIODARONE HYDROCHLORIDE [Interacting]
     Indication: PRODUCT USED FOR UNKNOWN INDICATION
     Dosage: 200 MG, QD
     Route: 065
  2. ACENOCOUMAROL [Concomitant]
     Indication: PRODUCT USED FOR UNKNOWN INDICATION
     Dosage: UNK
     Route: 065
  3. FENOFIBRATE [Interacting]
     Indication: HYPERTRIGLYCERIDAEMIA
     Dosage: 160 MG, QD
     Route: 065
  4. ROSUVASTATIN [Suspect]
     Indication: HYPERCHOLESTEROLAEMIA
     Dosage: 20 MG, QD
     Route: 065
  5. CALCIUM/COLECALCIFEROL [Concomitant]
     Indication: OSTEOPOROSIS
     Dosage: 1250 MG/400 U/24H
     Route: 065
  6. LEVOTHYROXINE SODIUM [Concomitant]
     Indication: HYPOTHYROIDISM
     Dosage: 75 UG, QD
     Route: 065

REACTIONS (3)
  - HEPATIC FAILURE [None]
  - RHABDOMYOLYSIS [None]
  - DRUG INTERACTION [None]
